FAERS Safety Report 7117955-7 (Version None)
Quarter: 2010Q4

REPORT INFORMATION
  Report Type: 
  Country: None (occurrence: None)
  Receive Date: 20101123
  Receipt Date: 20101117
  Transmission Date: 20110411
  Serious: Yes (Life-Threatening, Hospitalization)
  Sender: FDA-Public Use
  Company Number: PHFR2010GB05426

PATIENT
  Age: 39 Year
  Sex: Male

DRUGS (5)
  1. CLOZARIL [Suspect]
     Dosage: 400 MG, UNK
     Route: 048
     Dates: start: 20070413
  2. LITHIUM CARBONATE [Suspect]
     Dosage: 1000 MG, UNK
     Route: 048
  3. AMISULPRIDE [Concomitant]
     Dosage: 200 MG, BID
  4. AMOXICILLIN [Concomitant]
     Indication: NASOPHARYNGITIS
  5. HYOSCINE HBR HYT [Concomitant]
     Dosage: 300 UG, BID

REACTIONS (4)
  - FREQUENT BOWEL MOVEMENTS [None]
  - HYPERTHYROIDISM [None]
  - PALPITATIONS [None]
  - WEIGHT DECREASED [None]
